FAERS Safety Report 4398530-4 (Version None)
Quarter: 2004Q3

REPORT INFORMATION
  Report Type: 
  Country: None (occurrence: None)
  Receive Date: 20040715
  Receipt Date: 20040622
  Transmission Date: 20050211
  Serious: Yes (Other)
  Sender: FDA-Public Use
  Company Number: AU-GLAXOSMITHKLINE-B0337502A

PATIENT
  Age: 50 Year
  Sex: Female

DRUGS (2)
  1. ZYBAN [Suspect]
     Dates: start: 20040617, end: 20040622
  2. RISPERDAL [Concomitant]
     Indication: ACUTE STRESS DISORDER

REACTIONS (2)
  - FEELING ABNORMAL [None]
  - SUICIDAL IDEATION [None]
